FAERS Safety Report 15278789 (Version 2)
Quarter: 2018Q4

REPORT INFORMATION
  Report Type: Report from Study
  Country: US (occurrence: US)
  Receive Date: 20180815
  Receipt Date: 20181031
  Transmission Date: 20190204
  Serious: Yes (Hospitalization, Other)
  Sender: FDA-Public Use
  Company Number: US-ASTRAZENECA-2016SF30568

PATIENT
  Age: 73 Year
  Sex: Female
  Weight: 89.8 kg

DRUGS (3)
  1. BYDUREON [Suspect]
     Active Substance: EXENATIDE
     Indication: TYPE 2 DIABETES MELLITUS
     Route: 058
     Dates: start: 20160101
  2. XARELTO [Concomitant]
     Active Substance: RIVAROXABAN
     Indication: CARDIAC DISORDER
     Route: 048
  3. BYDUREON BCISE [Suspect]
     Active Substance: EXENATIDE
     Indication: DIABETES MELLITUS
     Route: 058

REACTIONS (21)
  - Sneezing [Unknown]
  - Contusion [Unknown]
  - Fatigue [Unknown]
  - Haematoma [Unknown]
  - Product dose omission [Unknown]
  - Head injury [Unknown]
  - Decreased appetite [Unknown]
  - Weight decreased [Unknown]
  - Seizure [Unknown]
  - Road traffic accident [Unknown]
  - Dizziness postural [Not Recovered/Not Resolved]
  - Sepsis [Recovered/Resolved]
  - Wound haemorrhage [Not Recovered/Not Resolved]
  - Limb injury [Unknown]
  - Fall [Unknown]
  - Dysgraphia [Unknown]
  - Paralysis [Recovered/Resolved]
  - Tremor [Unknown]
  - Cough [Recovered/Resolved]
  - Pneumonia [Recovered/Resolved]
  - Malaise [Unknown]

NARRATIVE: CASE EVENT DATE: 2015
